FAERS Safety Report 6903360-2 (Version None)
Quarter: 2010Q3

REPORT INFORMATION
  Report Type: 
  Country: None (occurrence: None)
  Receive Date: 20100803
  Receipt Date: 20081014
  Transmission Date: 20110219
  Serious: Yes (Other)
  Sender: FDA-Public Use
  Company Number: US-PFIZER INC-2008029655

PATIENT
  Sex: Female
  Weight: 83.9 kg

DRUGS (5)
  1. LYRICA [Suspect]
     Indication: FIBROMYALGIA
     Dates: start: 20080312, end: 20080331
  2. XANAX [Concomitant]
  3. OXYCONTIN [Concomitant]
  4. ANTIHYPERTENSIVES [Concomitant]
  5. HYDROCHLOROTHIAZIDE [Concomitant]

REACTIONS (21)
  - ASTHENIA [None]
  - COGNITIVE DISORDER [None]
  - COORDINATION ABNORMAL [None]
  - DIZZINESS [None]
  - DRY MOUTH [None]
  - FATIGUE [None]
  - FLATULENCE [None]
  - HEADACHE [None]
  - HOSTILITY [None]
  - MENTAL STATUS CHANGES [None]
  - MOOD ALTERED [None]
  - MUSCULAR WEAKNESS [None]
  - MYALGIA [None]
  - NAUSEA [None]
  - OEDEMA PERIPHERAL [None]
  - SCIATICA [None]
  - SOMNOLENCE [None]
  - SUICIDAL IDEATION [None]
  - TENDERNESS [None]
  - VISION BLURRED [None]
  - VISUAL IMPAIRMENT [None]
